FAERS Safety Report 23848360 (Version 6)
Quarter: 2024Q4

REPORT INFORMATION
  Report Type: Spontaneous
  Country: CA (occurrence: CA)
  Receive Date: 20240513
  Receipt Date: 20241023
  Transmission Date: 20250114
  Serious: Yes (Other)
  Sender: PFIZER
  Company Number: CA-PFIZER INC-202400104685

PATIENT
  Age: 53 Year
  Sex: Female
  Weight: 49 kg

DRUGS (7)
  1. RUXIENCE [Suspect]
     Active Substance: RITUXIMAB-PVVR
     Indication: Rheumatoid arthritis
     Dosage: DAY 1 AND DAY 15
     Route: 042
     Dates: start: 20231121, end: 20231205
  2. RUXIENCE [Suspect]
     Active Substance: RITUXIMAB-PVVR
     Dosage: DAY 1 AND DAY 15
     Route: 042
     Dates: start: 20231205
  3. RUXIENCE [Suspect]
     Active Substance: RITUXIMAB-PVVR
     Dosage: SUBSEQUENT DAY 1, (DAY 1 AND DAY 15)
     Route: 042
     Dates: start: 20240827
  4. RUXIENCE [Suspect]
     Active Substance: RITUXIMAB-PVVR
     Dosage: DAY 1 AND DAY 15 (1000MG, DAY 15 OF RETREATMENT)
     Route: 042
     Dates: start: 20240911
  5. BENADRYL [Concomitant]
     Active Substance: DIPHENHYDRAMINE HYDROCHLORIDE
     Indication: Premedication
     Dosage: UNK
     Dates: start: 20240827, end: 20240827
  6. METHOTREXATE [Concomitant]
     Active Substance: METHOTREXATE
     Indication: Rheumatoid arthritis
     Dosage: 10 MG
     Dates: start: 2014, end: 20200720
  7. METHOTREXATE [Concomitant]
     Active Substance: METHOTREXATE
     Dosage: 5 MG
     Dates: start: 20200720

REACTIONS (9)
  - Chest pain [Unknown]
  - Dyspnoea [Unknown]
  - Uterine cyst [Recovering/Resolving]
  - Salpingo-oophorectomy [Recovered/Resolved]
  - Wheezing [Recovered/Resolved]
  - Chronic obstructive pulmonary disease [Unknown]
  - Eye infection [Recovered/Resolved]
  - Drug ineffective [Not Recovered/Not Resolved]
  - Fatigue [Not Recovered/Not Resolved]

NARRATIVE: CASE EVENT DATE: 20230101
